FAERS Safety Report 14599070 (Version 1)
Quarter: 2018Q1

REPORT INFORMATION
  Report Type: Spontaneous
  Country: US (occurrence: US)
  Receive Date: 20180302
  Receipt Date: 20180302
  Transmission Date: 20180509
  Serious: Yes (Hospitalization)
  Sender: FDA-Public Use
  Company Number: None

PATIENT
  Age: 69 Year
  Sex: Female
  Weight: 99.5 kg

DRUGS (16)
  1. ROMIPLOSTIM [Suspect]
     Active Substance: ROMIPLOSTIM
     Indication: IMMUNE THROMBOCYTOPENIC PURPURA
     Dosage: ?          OTHER FREQUENCY:WEEKLY;?
     Route: 058
     Dates: start: 20171128, end: 20180221
  2. LORATADINE 10 MG PO DAILY [Concomitant]
  3. ROSUVASTATIN 10MG PO BEDTIME [Concomitant]
  4. TIOTROPIUM 1 INH INH Q 24 HRS [Concomitant]
  5. DICYCLOMINE 10MG PO TID [Concomitant]
  6. AMLODIPINE 5MG PO DAILY [Concomitant]
  7. CYCLOBENZAPRINE 10 MG PO TID [Concomitant]
  8. PREGABALIN 75MG PO DAILY [Concomitant]
  9. ESOMEPRAZOLE 40MG PO DAILY [Concomitant]
  10. LEVOTHYROXINE 112 MCG [Concomitant]
     Active Substance: LEVOTHYROXINE
  11. MEFORMIN 1000 MG PO BID [Concomitant]
  12. PERCOCET 5-325MG 1 TAB PO Q 4 HOUR PRN SEVERE PAIN [Concomitant]
  13. FERROUS GLUCONATE 325MG PO BID [Concomitant]
  14. PREDNISONE 40MG PO DAILY [Concomitant]
  15. LISINOPRIL 40MG PO DAILY [Concomitant]
  16. SERTRALINE 50MG PO DAILY [Concomitant]

REACTIONS (5)
  - Thrombocytopenia [None]
  - Leukocytosis [None]
  - Laboratory test abnormal [None]
  - Hyponatraemia [None]
  - Therapy cessation [None]

NARRATIVE: CASE EVENT DATE: 20180228
